FAERS Safety Report 5254408-5 (Version None)
Quarter: 2007Q1

REPORT INFORMATION
  Report Type: 
  Country: None (occurrence: None)
  Receive Date: 20070302
  Receipt Date: 20070222
  Transmission Date: 20070707
  Serious: Yes (Death, Other)
  Sender: FDA-Public Use
  Company Number: DE-ROXANE LABORATORIES, INC-2007-BP-02583RO

PATIENT
  Age: 56 Year
  Sex: Female

DRUGS (13)
  1. METHOTREXATE [Suspect]
     Indication: ACUTE LYMPHOCYTIC LEUKAEMIA
     Route: 037
  2. MERCAPTOPURINE [Suspect]
     Indication: ACUTE LYMPHOCYTIC LEUKAEMIA
  3. CYCLOPHOSPHAMIDE [Suspect]
     Indication: ACUTE LYMPHOCYTIC LEUKAEMIA
  4. VINCRISTINE [Suspect]
     Indication: ACUTE LYMPHOCYTIC LEUKAEMIA
  5. DAUNORUBICIN HCL [Suspect]
     Indication: ACUTE LYMPHOCYTIC LEUKAEMIA
  6. ASPARAGINASE [Suspect]
     Indication: ACUTE LYMPHOCYTIC LEUKAEMIA
  7. CYTARABINE [Suspect]
     Indication: ACUTE LYMPHOCYTIC LEUKAEMIA
  8. G-CSF [Suspect]
  9. FLUDARABINE [Suspect]
     Indication: BONE MARROW CONDITIONING REGIMEN
  10. CARMUSTINE [Suspect]
     Indication: BONE MARROW CONDITIONING REGIMEN
  11. MELPHALAN [Suspect]
     Indication: BONE MARROW CONDITIONING REGIMEN
  12. CYCLOSPORINE [Suspect]
     Indication: PROPHYLAXIS AGAINST GRAFT VERSUS HOST DISEASE
     Dosage: 5 MG/KG/DAY
  13. MYCOPHENOLATE MOFETIL [Suspect]
     Indication: PROPHYLAXIS AGAINST GRAFT VERSUS HOST DISEASE
     Dosage: 2 X 1 G/DAY

REACTIONS (15)
  - ACUTE RESPIRATORY DISTRESS SYNDROME [None]
  - C-REACTIVE PROTEIN INCREASED [None]
  - COMA [None]
  - CONVULSION [None]
  - EXTENSOR PLANTAR RESPONSE [None]
  - EYELID PTOSIS [None]
  - GRAFT VERSUS HOST DISEASE [None]
  - HYPERTENSION [None]
  - LEUKOENCEPHALOPATHY [None]
  - MUCOSAL INFLAMMATION [None]
  - MUSCULAR WEAKNESS [None]
  - PNEUMONIA [None]
  - PYREXIA [None]
  - RENAL IMPAIRMENT [None]
  - SOMNOLENCE [None]
